FAERS Safety Report 20187320 (Version 4)
Quarter: 2022Q1

REPORT INFORMATION
  Report Type: Spontaneous
  Country: JP (occurrence: JP)
  Receive Date: 20211215
  Receipt Date: 20220330
  Transmission Date: 20220423
  Serious: Yes (Hospitalization)
  Sender: FDA-Public Use
  Company Number: JP-Eisai-202109670_LEN-HCC_P_1

PATIENT
  Sex: Male
  Weight: 60 kg

DRUGS (3)
  1. LENVIMA [Suspect]
     Active Substance: LENVATINIB
     Indication: Hepatocellular carcinoma
     Route: 048
     Dates: start: 20211026, end: 20211117
  2. TERUFIS [Concomitant]
     Indication: Hepatic encephalopathy
     Dosage: DOSE AND FREQUENCY UNKNOWN
     Route: 041
     Dates: start: 20211106
  3. AMINO ACIDS, SOURCE UNSPECIFIED [Concomitant]
     Active Substance: AMINO ACIDS, SOURCE UNSPECIFIED
     Indication: Hepatic encephalopathy
     Dosage: DOSE AND FREQUENCY UNKNOWN
     Route: 041
     Dates: start: 20211106

REACTIONS (3)
  - Visual impairment [Recovered/Resolved]
  - Interstitial lung disease [Recovered/Resolved]
  - Hepatic encephalopathy [Recovered/Resolved]

NARRATIVE: CASE EVENT DATE: 20211103
